FAERS Safety Report 5315288-2 (Version None)
Quarter: 2007Q2

REPORT INFORMATION
  Report Type: 
  Country: None (occurrence: None)
  Receive Date: 20070502
  Receipt Date: 20070420
  Transmission Date: 20071010
  Serious: Yes (Other)
  Sender: FDA-Public Use
  Company Number: JP-PFIZER INC-2007032637

PATIENT
  Age: 58 Year
  Sex: Female

DRUGS (6)
  1. ALDACTONE [Suspect]
  2. LASIX [Concomitant]
  3. EUGLUCON [Concomitant]
  4. ENALAPRIL [Concomitant]
  5. EVAMYL [Concomitant]
  6. SENNOSIDES [Concomitant]

REACTIONS (1)
  - HERPES DERMATITIS [None]
